FAERS Safety Report 11109482 (Version 1)
Quarter: 2015Q2

REPORT INFORMATION
  Report Type: Spontaneous
  Country: FR (occurrence: FR)
  Receive Date: 20150513
  Receipt Date: 20150513
  Transmission Date: 20150821
  Serious: Yes (Life-Threatening, Hospitalization)
  Sender: FDA-Public Use
  Company Number: FR-SA-2015SA061351

PATIENT
  Sex: Female

DRUGS (1)
  1. LEMTRADA [Suspect]
     Active Substance: ALEMTUZUMAB
     Indication: MULTIPLE SCLEROSIS
     Route: 042
     Dates: start: 201504

REACTIONS (4)
  - Hemiplegia [Unknown]
  - Cerebrovascular accident [Unknown]
  - Aplasia [Unknown]
  - Fatigue [Unknown]

NARRATIVE: CASE EVENT DATE: 201504
